FAERS Safety Report 7525590-1 (Version None)
Quarter: 2011Q2

REPORT INFORMATION
  Report Type: 
  Country: None (occurrence: None)
  Receive Date: 20110606
  Receipt Date: 20110523
  Transmission Date: 20111010
  Serious: Yes (Other)
  Sender: FDA-Public Use
  Company Number: PHEH2007US04447

PATIENT

DRUGS (40)
  1. ZOMETA [Suspect]
  2. CEPHALEXIN [Concomitant]
  3. ZITHROMAX [Concomitant]
  4. IBUPROFEN [Concomitant]
  5. NEURONTIN [Concomitant]
  6. LOPRESSOR [Concomitant]
  7. CLINDA [Concomitant]
  8. DECADRON [Concomitant]
  9. ATENOLOL [Concomitant]
  10. ZETIA [Concomitant]
  11. METOPROLOL TARTRATE [Concomitant]
  12. NEUPOGEN [Concomitant]
  13. CHEMOTHERAPEUTICS NOS [Concomitant]
  14. DIFLUCAN [Concomitant]
  15. HEPARIN [Concomitant]
  16. FLEXERIL [Concomitant]
  17. FENTANYL [Concomitant]
  18. NORCO [Concomitant]
  19. TYLENOL-500 [Concomitant]
  20. AMBIEN [Concomitant]
  21. FERROUS SULFATE TAB [Concomitant]
  22. ZOVIRAX [Concomitant]
  23. BENADRYL ^ACHE^ [Concomitant]
  24. TORADOL [Concomitant]
  25. PROCRIT                            /00909301/ [Concomitant]
  26. THALIDOMIDE [Concomitant]
  27. LEVAQUIN [Concomitant]
  28. HEMOCYTE PLUS [Concomitant]
  29. AREDIA [Suspect]
     Indication: BONE NEOPLASM MALIGNANT
     Dosage: 90 MG, MONTHLY
     Dates: end: 20030303
  30. AREDIA [Suspect]
     Indication: MULTIPLE MYELOMA
  31. LIPITOR [Concomitant]
  32. PREDNISONE [Concomitant]
  33. PROVERA [Concomitant]
  34. COMPAZINE [Concomitant]
  35. MEDROL [Concomitant]
  36. ZOCOR [Concomitant]
  37. MELPHALAN HYDROCHLORIDE [Concomitant]
  38. VELCADE [Concomitant]
  39. PEPCID [Concomitant]
  40. ZOFRAN [Concomitant]

REACTIONS (27)
  - ARTERIOSCLEROSIS [None]
  - PANCYTOPENIA [None]
  - OSTEOMYELITIS [None]
  - GINGIVAL BLEEDING [None]
  - SCIATICA [None]
  - SKIN LESION [None]
  - SWELLING [None]
  - ACTINOMYCOSIS [None]
  - MUCOSAL INFLAMMATION [None]
  - SPINAL OSTEOARTHRITIS [None]
  - OSTEOARTHRITIS [None]
  - NEOPLASM MALIGNANT [None]
  - OSTEONECROSIS OF JAW [None]
  - BONE DISORDER [None]
  - EMOTIONAL DISTRESS [None]
  - PAIN [None]
  - NEUROPATHY PERIPHERAL [None]
  - DEFORMITY [None]
  - TOOTH ABSCESS [None]
  - SEBORRHOEIC KERATOSIS [None]
  - ANXIETY [None]
  - INTERVERTEBRAL DISC PROTRUSION [None]
  - BASAL CELL CARCINOMA [None]
  - INFECTION [None]
  - HYPOPHAGIA [None]
  - GINGIVAL PAIN [None]
  - HYPOAESTHESIA FACIAL [None]
